FAERS Safety Report 4952397-1 (Version None)
Quarter: 2006Q1

REPORT INFORMATION
  Report Type: 
  Country: None (occurrence: None)
  Receive Date: 20060317
  Receipt Date: 20060308
  Transmission Date: 20060701
  Serious: Yes (Life-Threatening, Hospitalization)
  Sender: FDA-Public Use
  Company Number: 230003M06ESP

PATIENT
  Age: 41 Year
  Sex: Female

DRUGS (1)
  1. REBIF [Suspect]

REACTIONS (2)
  - COLON CANCER METASTATIC [None]
  - METASTASES TO LIVER [None]
